FAERS Safety Report 15680002 (Version 1)
Quarter: 2018Q4

REPORT INFORMATION
  Report Type: Report from Study
  Country: US (occurrence: US)
  Receive Date: 20181203
  Receipt Date: 20181203
  Transmission Date: 20190205
  Serious: Yes (Other)
  Sender: FDA-Public Use
  Company Number: US-ROCHE-1416867

PATIENT
  Sex: Female

DRUGS (6)
  1. MM-302 [Suspect]
     Active Substance: INVESTIGATIONAL PRODUCT
     Route: 042
  2. CYCLOPHOSPHAMIDE. [Suspect]
     Active Substance: CYCLOPHOSPHAMIDE
     Indication: HER-2 POSITIVE BREAST CANCER
     Route: 042
  3. 64CU-MM-302 [Suspect]
     Active Substance: INVESTIGATIONAL PRODUCT
     Indication: HER-2 POSITIVE BREAST CANCER
     Route: 042
  4. MM-302 [Suspect]
     Active Substance: INVESTIGATIONAL PRODUCT
     Indication: HER-2 POSITIVE BREAST CANCER
     Route: 042
  5. MM-302 [Suspect]
     Active Substance: INVESTIGATIONAL PRODUCT
     Route: 042
  6. TRASTUZUMAB. [Suspect]
     Active Substance: TRASTUZUMAB
     Indication: HER-2 POSITIVE BREAST CANCER
     Route: 042

REACTIONS (10)
  - Fatigue [Unknown]
  - Cardiac failure [Unknown]
  - Anaemia [Unknown]
  - Infusion related reaction [Unknown]
  - Febrile neutropenia [Unknown]
  - Alopecia [Unknown]
  - Thrombocytopenia [Unknown]
  - Palmar-plantar erythrodysaesthesia syndrome [Unknown]
  - Neutropenia [Unknown]
  - Mucosal inflammation [Unknown]
